FAERS Safety Report 5367290-2 (Version None)
Quarter: 2007Q2

REPORT INFORMATION
  Report Type: 
  Country: None (occurrence: None)
  Receive Date: 20070622
  Receipt Date: 20070620
  Transmission Date: 20071010
  Serious: Yes (Death)
  Sender: FDA-Public Use
  Company Number: US-BRISTOL-MYERS SQUIBB COMPANY-13821178

PATIENT
  Sex: Male
  Weight: 136 kg

DRUGS (7)
  1. COUMADIN [Suspect]
     Indication: HEART RATE IRREGULAR
     Route: 048
  2. FLEXERIL [Concomitant]
  3. TOPROL-XL [Concomitant]
  4. LEXAPRO [Concomitant]
  5. AVANDIA [Concomitant]
  6. LANOXIN [Concomitant]
  7. FUROSEMIDE [Concomitant]

REACTIONS (1)
  - BRAIN NEOPLASM [None]
